FAERS Safety Report 12834008 (Version 1)
Quarter: 2016Q4

REPORT INFORMATION
  Report Type: Spontaneous
  Country: US (occurrence: US)
  Receive Date: 20161010
  Receipt Date: 20161010
  Transmission Date: 20170207
  Serious: Yes (Life-Threatening, Other)
  Sender: FDA-Public Use
  Company Number: US-MYLANLABS-2016M1043078

PATIENT

DRUGS (1)
  1. NITROFURANTOIN MONOHYDRATE MACROCRYSTALS [Suspect]
     Active Substance: NITROFURANTOIN\NITROFURANTOIN MONOHYDRATE
     Indication: CYSTITIS
     Dosage: 100 MG, BID
     Route: 048
     Dates: start: 201609, end: 201609

REACTIONS (5)
  - Electrocardiogram T wave abnormal [Unknown]
  - Fatigue [Not Recovered/Not Resolved]
  - Anaphylactic reaction [Recovered/Resolved]
  - Erythema multiforme [Recovered/Resolved]
  - Pulmonary congestion [Not Recovered/Not Resolved]

NARRATIVE: CASE EVENT DATE: 201609
